FAERS Safety Report 22235228 (Version 1)
Quarter: 2023Q2

REPORT INFORMATION
  Report Type: Spontaneous
  Country: GB (occurrence: GB)
  Receive Date: 20230420
  Receipt Date: 20230420
  Transmission Date: 20230721
  Serious: Yes (Life-Threatening, Other)
  Sender: FDA-Public Use
  Company Number: GB-PFIZER INC-PV202300071247

PATIENT
  Age: 10 Year
  Sex: Male

DRUGS (7)
  1. METHOTREXATE SODIUM [Suspect]
     Active Substance: METHOTREXATE SODIUM
     Indication: Acute lymphocytic leukaemia
     Dosage: UNK, CYCLIC
     Route: 037
  2. VINCRISTINE SULFATE [Suspect]
     Active Substance: VINCRISTINE SULFATE
     Indication: Acute lymphocytic leukaemia
     Dosage: UNK UNK, CYCLIC
     Route: 042
  3. CYTARABINE [Suspect]
     Active Substance: CYTARABINE
     Indication: Acute lymphocytic leukaemia
     Dosage: UNK, CYCLIC
     Route: 037
  4. HYDROCORTISONE SODIUM SUCCINATE [Suspect]
     Active Substance: HYDROCORTISONE SODIUM SUCCINATE
     Indication: Acute lymphocytic leukaemia
     Dosage: UNK, CYCLIC
     Route: 037
  5. PREDNISOLONE [Suspect]
     Active Substance: PREDNISOLONE
     Dosage: UNK, CYCLIC
     Route: 048
  6. LEUCOVORIN [Suspect]
     Active Substance: LEUCOVORIN
     Indication: Acute lymphocytic leukaemia
     Dosage: UNK, CYCLIC
     Route: 048
  7. CYCLOPHOSPHAMIDE [Suspect]
     Active Substance: CYCLOPHOSPHAMIDE
     Dosage: UNK, CYCLIC
     Route: 042

REACTIONS (1)
  - Posterior reversible encephalopathy syndrome [Recovered/Resolved]
